FAERS Safety Report 24039462 (Version 1)
Quarter: 2024Q3

REPORT INFORMATION
  Report Type: Report from Study
  Country: CA (occurrence: CA)
  Receive Date: 20240702
  Receipt Date: 20240702
  Transmission Date: 20241017
  Serious: Yes (Other)
  Sender: GLAXOSMITHKLINE
  Company Number: CA-GLAXOSMITHKLINE-CA2024068835

PATIENT

DRUGS (1)
  1. DOSTARLIMAB [Suspect]
     Active Substance: DOSTARLIMAB
     Indication: Endometrial cancer
     Dosage: 500 MG EVERY 3 WEEKS FOR DOSE 1-6; THEN 1000 MG EVERY 6 WEEKS
     Dates: start: 20240405, end: 20240625

REACTIONS (2)
  - Immune-mediated hepatitis [Unknown]
  - Hepatic enzyme increased [Unknown]
